FAERS Safety Report 7569279-1 (Version None)
Quarter: 2011Q2

REPORT INFORMATION
  Report Type: 
  Country: None (occurrence: None)
  Receive Date: 20110623
  Receipt Date: 20110620
  Transmission Date: 20111010
  Serious: Yes (Hospitalization)
  Sender: FDA-Public Use
  Company Number: PHHO2011DE08179

PATIENT
  Weight: 64.2 kg

DRUGS (6)
  1. IMATINIB MESYLATE [Suspect]
     Dosage: NO TREATMENT RECEIVED
     Dates: start: 20100303, end: 20100304
  2. CAPECITABINE [Concomitant]
  3. FLUOROURACIL [Concomitant]
  4. IMATINIB MESYLATE [Suspect]
     Dosage: UNK
     Dates: start: 20100305
  5. IMATINIB MESYLATE [Suspect]
     Indication: METASTATIC GASTRIC CANCER
     Dosage: UNK
     Dates: start: 20100302, end: 20100302
  6. CISPLATIN [Concomitant]

REACTIONS (1)
  - GENERAL PHYSICAL HEALTH DETERIORATION [None]
